FAERS Safety Report 17922135 (Version 1)
Quarter: 2020Q2

REPORT INFORMATION
  Report Type: Spontaneous
  Country: US (occurrence: US)
  Receive Date: 20200621
  Receipt Date: 20200621
  Transmission Date: 20200714
  Serious: Yes (Death)
  Sender: FDA-Public Use
  Company Number: None

PATIENT
  Age: 76 Year
  Sex: Male
  Weight: 95 kg

DRUGS (10)
  1. TAMSULOSIN [Concomitant]
     Active Substance: TAMSULOSIN
     Dates: start: 20200618, end: 20200621
  2. LOVENOX [Concomitant]
     Active Substance: ENOXAPARIN SODIUM
     Dates: start: 20200618, end: 20200621
  3. REMDESIVIR. [Suspect]
     Active Substance: REMDESIVIR
     Indication: COVID-19
     Dosage: ?          OTHER FREQUENCY:ONCE, THEN 100MG;??
     Route: 042
     Dates: start: 20200620, end: 20200621
  4. ASPIRIN. [Concomitant]
     Active Substance: ASPIRIN
     Dates: start: 20200618, end: 20200621
  5. INSULIN LISPRO [Concomitant]
     Active Substance: INSULIN LISPRO
     Dates: start: 20200618, end: 20200621
  6. CEFTRIAXONE. [Concomitant]
     Active Substance: CEFTRIAXONE
     Dates: start: 20200618, end: 20200621
  7. FINASTERIDE. [Concomitant]
     Active Substance: FINASTERIDE
     Dates: start: 20200618, end: 20200621
  8. OXYCODONE [Concomitant]
     Active Substance: OXYCODONE
     Dates: start: 20200618, end: 20200621
  9. ALBUTEROL. [Concomitant]
     Active Substance: ALBUTEROL
     Dates: start: 20200618, end: 20200621
  10. LOPRESSOR [Concomitant]
     Active Substance: METOPROLOL TARTRATE
     Dates: start: 20200618, end: 20200621

REACTIONS (1)
  - Death [None]

NARRATIVE: CASE EVENT DATE: 20200621
